FAERS Safety Report 8589493-6 (Version None)
Quarter: 2012Q3

REPORT INFORMATION
  Report Type: 
  Country: None (occurrence: None)
  Receive Date: 20120813
  Receipt Date: 20120805
  Transmission Date: 20120928
  Serious: Yes (Hospitalization)
  Sender: FDA-Public Use
  Company Number: CA-ELI_LILLY_AND_COMPANY-CA201208002504

PATIENT
  Age: 75 Year
  Sex: Female

DRUGS (12)
  1. SOFLAX [Concomitant]
  2. VITAMIN B-12 [Concomitant]
  3. SENOKOT [Concomitant]
  4. FOLIC ACID [Concomitant]
  5. MEFORMIN [Concomitant]
  6. FORTEO [Suspect]
     Indication: OSTEOPOROSIS
     Dosage: 20 UG, QD
     Route: 058
     Dates: start: 20110606
  7. METOPROLOL [Concomitant]
  8. VITAMIN D [Concomitant]
  9. CANDESARTAN CILEXETIL [Concomitant]
  10. METHOTREXATE [Concomitant]
  11. WARFARIN SODIUM [Concomitant]
  12. FUROSEMIDE [Concomitant]

REACTIONS (3)
  - SHOULDER ARTHROPLASTY [None]
  - VERTEBROPLASTY [None]
  - MUSCULOSKELETAL PAIN [None]
